FAERS Safety Report 17882531 (Version 1)
Quarter: 2020Q2

REPORT INFORMATION
  Report Type: Spontaneous
  Country: US (occurrence: US)
  Receive Date: 20200610
  Receipt Date: 20200610
  Transmission Date: 20200714
  Serious: Yes (Hospitalization, Other)
  Sender: FDA-Public Use
  Company Number: US-AMGEN-USASP2020089232

PATIENT

DRUGS (9)
  1. ETOPOSIDE. [Concomitant]
     Active Substance: ETOPOSIDE
     Indication: PLASMA CELL MYELOMA
     Dosage: UNK
     Route: 042
  2. FILGRASTIM [Suspect]
     Active Substance: FILGRASTIM
     Indication: PLASMA CELL MYELOMA
     Dosage: 10 MICROGRAM/KILOGRAM, QD
     Route: 058
  3. DEXAMETHASONE. [Concomitant]
     Active Substance: DEXAMETHASONE
     Indication: PLASMA CELL MYELOMA
     Route: 048
  4. CISPLATIN. [Concomitant]
     Active Substance: CISPLATIN
     Indication: PLASMA CELL MYELOMA
     Route: 042
  5. DOXORUBICIN [Concomitant]
     Active Substance: DOXORUBICIN
     Indication: PLASMA CELL MYELOMA
     Dosage: UNK
     Route: 042
  6. CYCLOPHOSPHAMIDE. [Concomitant]
     Active Substance: CYCLOPHOSPHAMIDE
     Indication: PLASMA CELL MYELOMA
     Dosage: UNK
     Route: 042
  7. CARFILZOMIB [Suspect]
     Active Substance: CARFILZOMIB
     Indication: PLASMA CELL MYELOMA
     Dosage: UNK
     Route: 042
  8. REVLIMID [Concomitant]
     Active Substance: LENALIDOMIDE
     Indication: PLASMA CELL MYELOMA
     Dosage: UNK
     Route: 048
  9. MELPHALAN. [Concomitant]
     Active Substance: MELPHALAN
     Dosage: 200 MILLIGRAM/SQ. METER

REACTIONS (11)
  - Bacteraemia [Unknown]
  - Cardiotoxicity [Unknown]
  - Upper respiratory tract infection [Unknown]
  - Liver function test increased [Unknown]
  - Cholecystitis [Unknown]
  - Infection [Unknown]
  - Febrile neutropenia [Unknown]
  - Plasma cell myeloma [Unknown]
  - Off label use [Unknown]
  - Plasma cell leukaemia [Unknown]
  - Therapy partial responder [Unknown]
